FAERS Safety Report 18591213 (Version 2)
Quarter: 2020Q4

REPORT INFORMATION
  Report Type: Spontaneous
  Country: IT (occurrence: IT)
  Receive Date: 20201208
  Receipt Date: 20201228
  Transmission Date: 20210114
  Serious: Yes (Life-Threatening, Other)
  Sender: FDA-Public Use
  Company Number: IT-PFIZER INC-2020478315

PATIENT
  Age: 70 Year
  Sex: Male

DRUGS (3)
  1. METHYLPREDNISOLONE SODIUM SUCCINATE. [Suspect]
     Active Substance: METHYLPREDNISOLONE SODIUM SUCCINATE
     Indication: COVID-19 PNEUMONIA
     Dosage: 40 MG, DAILY
     Route: 042
  2. OXYGEN. [Concomitant]
     Active Substance: OXYGEN
     Indication: COVID-19 PNEUMONIA
     Dosage: UNK, (HIGH-FLOW)
  3. HYDROXYCHLOROQUINE [Concomitant]
     Active Substance: HYDROXYCHLOROQUINE
     Indication: COVID-19 PNEUMONIA
     Dosage: 400 MG, DAILY

REACTIONS (2)
  - Endocarditis staphylococcal [Unknown]
  - Off label use [Unknown]
